FAERS Safety Report 22278241 (Version 1)
Quarter: 2023Q2

REPORT INFORMATION
  Report Type: Spontaneous
  Country: US (occurrence: None)
  Receive Date: 20230502
  Receipt Date: 20230502
  Transmission Date: 20230721
  Serious: Yes (Death)
  Sender: FDA-Public Use
  Company Number: None

PATIENT
  Age: 83 Year
  Sex: Female

DRUGS (7)
  1. DROXIDOPA [Suspect]
     Active Substance: DROXIDOPA
     Indication: Autonomic nervous system imbalance
     Dosage: FREQUENCY : TWICE A DAY;?
     Route: 048
     Dates: start: 20211014
  2. CAPTOPRIL [Concomitant]
     Active Substance: CAPTOPRIL
  3. CARBIDOPA [Concomitant]
     Active Substance: CARBIDOPA
  4. CLONIDINE [Concomitant]
     Active Substance: CLONIDINE
  5. NEUPRO DIS [Concomitant]
  6. OXYBUTYNIN [Concomitant]
  7. PYRIDOSTIGMI ER [Concomitant]

REACTIONS (1)
  - Death [None]

NARRATIVE: CASE EVENT DATE: 20230502
